FAERS Safety Report 18635934 (Version 2)
Quarter: 2020Q4

REPORT INFORMATION
  Report Type: Spontaneous
  Country: TR (occurrence: TR)
  Receive Date: 20201218
  Receipt Date: 20201223
  Transmission Date: 20210114
  Serious: Yes (Other)
  Sender: FDA-Public Use
  Company Number: TR-PFIZER INC-2020494074

PATIENT
  Age: 48 Year
  Sex: Female

DRUGS (4)
  1. METHYLPREDNISOLONE ACETATE. [Suspect]
     Active Substance: METHYLPREDNISOLONE ACETATE
     Indication: POLYMYOSITIS
     Dosage: 1000 MG, DAILY
  2. METHYLPREDNISOLONE ACETATE. [Suspect]
     Active Substance: METHYLPREDNISOLONE ACETATE
     Dosage: 1 MG/KG, DAILY
  3. METHYLPREDNISOLONE ACETATE. [Suspect]
     Active Substance: METHYLPREDNISOLONE ACETATE
     Dosage: 4 MG, DAILY (GRADUALLY REDUCED TO 4 MG/DAY)
  4. METHOTREXATE. [Concomitant]
     Active Substance: METHOTREXATE
     Indication: POLYMYOSITIS
     Dosage: 15 MG, WEEKLY

REACTIONS (1)
  - Osteonecrosis [Recovering/Resolving]
